FAERS Safety Report 6343628-4 (Version None)
Quarter: 2009Q3

REPORT INFORMATION
  Report Type: 
  Country: None (occurrence: None)
  Receive Date: 20090908
  Receipt Date: 20071005
  Transmission Date: 20100115
  Serious: Yes (Hospitalization)
  Sender: FDA-Public Use
  Company Number: FR-NOVOPROD-266987

PATIENT
  Age: 71 Year
  Sex: Male

DRUGS (6)
  1. NOVONORM [Suspect]
     Indication: TYPE 2 DIABETES MELLITUS
     Dosage: .5 MG, TID
     Dates: end: 20070522
  2. APROVEL [Suspect]
     Indication: DRUG USE FOR UNKNOWN INDICATION
     Dosage: 300 MG, UNK
     Dates: end: 20070522
  3. STAGID [Suspect]
     Indication: DRUG USE FOR UNKNOWN INDICATION
     Dosage: 1 TAB, TID
     Dates: start: 20030101, end: 20070522
  4. LASILIX                            /00032601/ [Concomitant]
     Indication: DRUG USE FOR UNKNOWN INDICATION
     Dosage: 1 TAB, UNK
  5. DIFFU-K [Concomitant]
     Indication: DRUG USE FOR UNKNOWN INDICATION
     Dosage: 1 TAB, UNK
     Dates: end: 20070523
  6. BUMEX [Concomitant]
     Indication: DRUG USE FOR UNKNOWN INDICATION
     Dates: end: 20070523

REACTIONS (5)
  - ANAEMIA [None]
  - DYSPNOEA [None]
  - PRODUCTIVE COUGH [None]
  - RALES [None]
  - RENAL FAILURE ACUTE [None]
